FAERS Safety Report 23468021 (Version 1)
Quarter: 2024Q1

REPORT INFORMATION
  Report Type: Spontaneous
  Country: US (occurrence: None)
  Receive Date: 20240201
  Receipt Date: 20240201
  Transmission Date: 20240410
  Serious: Yes (Hospitalization, Other)
  Sender: FDA-Public Use
  Company Number: US-Emmaus Medical, Inc.-EMM202311-000394

PATIENT
  Age: 10 Year
  Sex: Female

DRUGS (5)
  1. ENDARI [Suspect]
     Active Substance: GLUTAMINE
     Indication: Sickle cell anaemia with crisis
     Dosage: 10 G
     Route: 048
     Dates: start: 202308
  2. ENDARI [Suspect]
     Active Substance: GLUTAMINE
     Indication: Sickle cell anaemia
     Dosage: 10 G (TWO PACKETS)
     Route: 048
     Dates: start: 202310
  3. ENDARI [Suspect]
     Active Substance: GLUTAMINE
     Dosage: 5 G (ONE PACKET)
     Route: 048
     Dates: start: 202310
  4. ENDARI [Suspect]
     Active Substance: GLUTAMINE
     Dosage: 10 G
     Route: 048
     Dates: start: 20231119
  5. PENICILLIN [Concomitant]
     Active Substance: PENICILLIN
     Indication: Product used for unknown indication
     Dosage: UNKNOWN
     Route: 065

REACTIONS (8)
  - Splenectomy [Unknown]
  - Sickle cell anaemia with crisis [Not Recovered/Not Resolved]
  - Fatigue [Unknown]
  - Insomnia [Unknown]
  - Abdominal discomfort [Recovered/Resolved]
  - Nausea [Unknown]
  - Abdominal pain upper [Unknown]
  - Therapy interrupted [Unknown]

NARRATIVE: CASE EVENT DATE: 20230101
